FAERS Safety Report 23192479 (Version 1)
Quarter: 2023Q4

REPORT INFORMATION
  Report Type: Spontaneous
  Country: IT (occurrence: IT)
  Receive Date: 20231116
  Receipt Date: 20231116
  Transmission Date: 20240110
  Serious: Yes (Other)
  Sender: FDA-Public Use
  Company Number: IT-ABBVIE-5494032

PATIENT
  Age: 68 Year
  Sex: Male

DRUGS (2)
  1. CEFTAROLINE [Suspect]
     Active Substance: CEFTAROLINE
     Indication: Endocarditis staphylococcal
     Dosage: TIME INTERVAL: 0.33333333 DAYS
     Route: 065
  2. DAPTOMYCIN [Suspect]
     Active Substance: DAPTOMYCIN
     Indication: Endocarditis staphylococcal
     Route: 065

REACTIONS (3)
  - Apallic syndrome [Unknown]
  - Off label use [Unknown]
  - Drug ineffective [Unknown]
